FAERS Safety Report 22378858 (Version 2)
Quarter: 2023Q2

REPORT INFORMATION
  Report Type: Report from Study
  Country: US (occurrence: US)
  Receive Date: 20230529
  Receipt Date: 20230601
  Transmission Date: 20230722
  Serious: Yes (Other)
  Sender: FDA-Public Use
  Company Number: US-TEVA-2023-US-2890566

PATIENT
  Age: 75 Year
  Sex: Female

DRUGS (2)
  1. COPAXONE [Suspect]
     Active Substance: GLATIRAMER ACETATE
     Indication: Product used for unknown indication
     Dosage: 40 MG/ML
     Route: 065
     Dates: start: 20180112
  2. COPAXONE [Suspect]
     Active Substance: GLATIRAMER ACETATE
     Dosage: FORM STRENGTH: UNKNOWN
     Route: 065
     Dates: start: 2003

REACTIONS (1)
  - Central nervous system lesion [Recovering/Resolving]
